FAERS Safety Report 8576323-1 (Version None)
Quarter: 2012Q2

REPORT INFORMATION
  Report Type: 
  Country: None (occurrence: None)
  Receive Date: 20120423
  Receipt Date: 20100416
  Transmission Date: 20120825
  Serious: Yes (Hospitalization)
  Sender: FDA-Public Use
  Company Number: PHEH2009US12441

PATIENT
  Age: 36 Year
  Sex: Female
  Weight: 60.8 kg

DRUGS (5)
  1. MS CONTIN [Concomitant]
  2. PROCRIT [Concomitant]
  3. EXJADE [Suspect]
     Indication: SICKLE CELL ANAEMIA
     Dosage: 1125 MG, QD, ORAL
     Route: 048
     Dates: start: 20080909
  4. MS CONTIN [Concomitant]
  5. FOLIC ACID [Concomitant]

REACTIONS (2)
  - WHITE BLOOD CELL COUNT DECREASED [None]
  - SICKLE CELL ANAEMIA WITH CRISIS [None]
